FAERS Safety Report 8559252-9 (Version None)
Quarter: 2012Q3

REPORT INFORMATION
  Report Type: 
  Country: None (occurrence: None)
  Receive Date: 20120720
  Receipt Date: 20120710
  Transmission Date: 20120928
  Serious: Yes (Death, Other)
  Sender: FDA-Public Use
  Company Number: DKLU1083191

PATIENT
  Age: 44 Year
  Sex: Male

DRUGS (3)
  1. ANTIEPILEPTICS (ANTIEPILEPTICS) (200 MG) [Suspect]
     Indication: EPILEPSY
     Dosage: 200 MG MILLIGRAM(S), 2 IN 1 D
     Dates: start: 20111013, end: 20120511
  2. CARBAMAZEPINE [Suspect]
     Indication: EPILEPSY
     Dosage: 2 IN 1 D
     Dates: end: 20120511
  3. ONFI [Suspect]
     Indication: EPILEPSY
     Dosage: 10 MG MILLIGRAM(S), 1 IN 1 D, ORAL
     Route: 048
     Dates: end: 20120511

REACTIONS (4)
  - ASPHYXIA [None]
  - INSOMNIA [None]
  - CONVULSION [None]
  - RESTLESSNESS [None]
